FAERS Safety Report 4603165-1 (Version None)
Quarter: 2005Q1

REPORT INFORMATION
  Report Type: 
  Country: None (occurrence: None)
  Receive Date: 20050307
  Receipt Date: 20050221
  Transmission Date: 20050727
  Serious: Yes (Hospitalization)
  Sender: FDA-Public Use
  Company Number: 05H-028-0289896

PATIENT
  Age: 54 Year
  Sex: Female

DRUGS (3)
  1. STERILE WATER FOR INJECTION [Suspect]
     Indication: MEDICATION DILUTION
     Dosage: SUBCUTANEOUS
     Route: 058
     Dates: start: 20041119, end: 20041213
  2. PEGETRON [Suspect]
     Indication: HEPATITIS C
     Dosage: SUBCUTANEOUS
     Route: 058
     Dates: start: 20041119, end: 20041213
  3. RIBAVIRIN [Suspect]
     Indication: HEPATITIS C
     Dosage: ORAL
     Route: 048
     Dates: start: 20041119, end: 20041213

REACTIONS (2)
  - HEPATIC NEOPLASM MALIGNANT [None]
  - STAPHYLOCOCCAL BACTERAEMIA [None]
